FAERS Safety Report 10681658 (Version 7)
Quarter: 2015Q3

REPORT INFORMATION
  Report Type: Report from Study
  Country: CA (occurrence: CA)
  Receive Date: 20141230
  Receipt Date: 20150709
  Transmission Date: 20151125
  Serious: Yes (Hospitalization, Other)
  Sender: FDA-Public Use
  Company Number: CA-ABBVIE-14K-028-1318299-00

PATIENT
  Age: 46 Year
  Sex: Male
  Weight: 111.23 kg

DRUGS (9)
  1. HUMIRA [Suspect]
     Active Substance: ADALIMUMAB
     Route: 058
     Dates: start: 201501, end: 20150406
  2. CODEINE [Concomitant]
     Active Substance: CODEINE
     Indication: PAIN
     Route: 048
     Dates: start: 2007
  3. HUMIRA [Suspect]
     Active Substance: ADALIMUMAB
     Dosage: INDUCTION DOSE
     Route: 058
     Dates: start: 20141209, end: 20141209
  4. HUMIRA [Suspect]
     Active Substance: ADALIMUMAB
     Route: 058
     Dates: start: 2015
  5. PREDNISONE. [Suspect]
     Active Substance: PREDNISONE
     Route: 048
     Dates: start: 2015
  6. HUMIRA [Suspect]
     Active Substance: ADALIMUMAB
     Indication: CROHN^S DISEASE
     Route: 058
     Dates: start: 20080501, end: 2010
  7. HUMIRA [Suspect]
     Active Substance: ADALIMUMAB
     Dosage: LOADING DOSE
     Route: 058
     Dates: start: 20141230, end: 20141230
  8. PREDNISONE. [Suspect]
     Active Substance: PREDNISONE
     Indication: CROHN^S DISEASE
     Route: 048
     Dates: start: 2006, end: 2015
  9. CODEINE [Concomitant]
     Active Substance: CODEINE
     Indication: CROHN^S DISEASE

REACTIONS (6)
  - Abdominal hernia [Not Recovered/Not Resolved]
  - Arthralgia [Not Recovered/Not Resolved]
  - Medical device complication [Unknown]
  - Abdominal operation [Unknown]
  - Psoriasis [Not Recovered/Not Resolved]
  - Abdominal infection [Not Recovered/Not Resolved]

NARRATIVE: CASE EVENT DATE: 201502
